FAERS Safety Report 6819017-2 (Version None)
Quarter: 2010Q3

REPORT INFORMATION
  Report Type: 
  Country: None (occurrence: None)
  Receive Date: 20100701
  Receipt Date: 20100624
  Transmission Date: 20110219
  Serious: Yes (Other)
  Sender: FDA-Public Use
  Company Number: 2010SP033112

PATIENT
  Age: 35 Year
  Sex: Female

DRUGS (6)
  1. MIRTAZAPINE [Suspect]
     Indication: PRODUCT USED FOR UNKNOWN INDICATION
     Dosage: 15 MG; ONCE; PO; 7.5 MG; QD; PO
     Route: 048
  2. FLUNITRAZEPAM [Concomitant]
  3. ZOLPIDEM TARTRATE [Concomitant]
  4. LEVOMEPROMAZINE [Concomitant]
  5. BROMAZEPAM [Concomitant]
  6. LUVOX [Concomitant]

REACTIONS (2)
  - CONVULSION [None]
  - VIITH NERVE PARALYSIS [None]
